FAERS Safety Report 8165381-4 (Version None)
Quarter: 2012Q1

REPORT INFORMATION
  Report Type: 
  Country: None (occurrence: None)
  Receive Date: 20120227
  Receipt Date: 20120215
  Transmission Date: 20120608
  Serious: Yes (Hospitalization, Other)
  Sender: FDA-Public Use
  Company Number: US-BAYER-201023420NA

PATIENT
  Age: 42 Year
  Sex: Female
  Weight: 68.027 kg

DRUGS (14)
  1. LOVENOX [Concomitant]
     Dosage: 60 MG, BID
  2. FAMOTIDINE [Concomitant]
     Dosage: 20 MG, BID
     Route: 048
  3. WARFARIN SODIUM [Concomitant]
     Dosage: 5 MG/QHS, UNK
     Route: 048
  4. HYDROCODONE BITARTRATE AND ACETAMINOPHEN [Concomitant]
     Dosage: 500 MG, UNK
     Route: 048
  5. PROMETHAZINE DM [Concomitant]
     Dosage: 25 MG, UNK
     Route: 048
  6. ANZEMET [Concomitant]
     Dosage: 12.5 MG, EVERY 6 HOURS, PRN
     Dates: start: 20041122
  7. ANCEF [Concomitant]
     Dosage: 1 MG, UNK
     Route: 042
     Dates: start: 20050523
  8. HEPARIN [Concomitant]
     Dosage: 400 U/HR, UNK
     Route: 042
     Dates: start: 20041124
  9. YASMIN [Suspect]
     Indication: ADENOMYOSIS
     Dosage: UNK
     Dates: start: 20020318, end: 20041101
  10. HYDROCODONE BITARTRATE AND ACETAMINOPHEN [Concomitant]
     Indication: PAIN
     Dosage: 5 MG, UNK
     Route: 048
  11. YASMIN [Suspect]
     Indication: MENOMETRORRHAGIA
  12. TISSUE PLASMINOGEN ACTIVATOR, RECOMBINATIVE [Concomitant]
     Dosage: 2 MG@100 CC/HR, UNK
     Route: 042
     Dates: start: 20041124
  13. LORTAB ASA [Concomitant]
     Indication: PAIN
     Dosage: UNK UNK, Q4HR, 1-2 TABLETS
     Route: 048
  14. PHENERGAN [Concomitant]
     Indication: NAUSEA
     Dosage: 25 MG, UNK
     Route: 048

REACTIONS (4)
  - THROMBOSIS [None]
  - PORTAL VEIN THROMBOSIS [None]
  - COAGULOPATHY [None]
  - GALLBLADDER DISORDER [None]
